FAERS Safety Report 7151894-0 (Version None)
Quarter: 2010Q4

REPORT INFORMATION
  Report Type: 
  Country: None (occurrence: None)
  Receive Date: 20101210
  Receipt Date: 20101201
  Transmission Date: 20110411
  Serious: Yes (Other)
  Sender: FDA-Public Use
  Company Number: US-ABBOTT-10P-163-0688845-00

PATIENT

DRUGS (3)
  1. SYNTHROID [Suspect]
     Indication: PRODUCT USED FOR UNKNOWN INDICATION
     Dates: start: 19700101
  2. ACTONEL [Suspect]
     Indication: PRODUCT USED FOR UNKNOWN INDICATION
  3. ACTONEL [Concomitant]

REACTIONS (6)
  - BLOOD CALCIUM ABNORMAL [None]
  - BLOOD THYROID STIMULATING HORMONE ABNORMAL [None]
  - BONE DENSITY ABNORMAL [None]
  - DENTAL PROSTHESIS USER [None]
  - TEMPOROMANDIBULAR JOINT SYNDROME [None]
  - THYROIDECTOMY [None]
